APPROVED DRUG PRODUCT: THIOPLEX
Active Ingredient: THIOTEPA
Strength: 15MG/VIAL **Federal Register determination that product was not discontinued or withdrawn for safety or effectiveness reasons**
Dosage Form/Route: INJECTABLE;INJECTION
Application: N020058 | Product #001
Applicant: IMMUNEX CORP
Approved: Dec 22, 1994 | RLD: Yes | RS: No | Type: DISCN